FAERS Safety Report 10472521 (Version 2)
Quarter: 2014Q3

REPORT INFORMATION
  Report Type: Spontaneous
  Country: FR (occurrence: FR)
  Receive Date: 20140924
  Receipt Date: 20140924
  Transmission Date: 20150326
  Serious: Yes (Hospitalization)
  Sender: FDA-Public Use
  Company Number: FR-ROCHE-1209224

PATIENT
  Age: 77 Year
  Sex: Female

DRUGS (12)
  1. KARDEGIC [Concomitant]
     Active Substance: ASPIRIN LYSINE
  2. VENTOLINE [Concomitant]
     Active Substance: ALBUTEROL
  3. SINGULAIR [Suspect]
     Active Substance: MONTELUKAST SODIUM
     Indication: PRODUCT USED FOR UNKNOWN INDICATION
     Route: 048
  4. OXEOL [Concomitant]
  5. ZAMUDOL [Concomitant]
     Active Substance: TRAMADOL HYDROCHLORIDE
  6. INEXIUM [Concomitant]
     Active Substance: ESOMEPRAZOLE
  7. SEROPLEX [Concomitant]
     Active Substance: ESCITALOPRAM OXALATE
  8. XOLAIR [Suspect]
     Active Substance: OMALIZUMAB
     Indication: PRODUCT USED FOR UNKNOWN INDICATION
     Dosage: 1 INJECTION
     Route: 065
     Dates: start: 201204, end: 20130111
  9. SOLUPRED (FRANCE) [Concomitant]
     Active Substance: PREDNISOLONE
  10. SERETIDE [Concomitant]
     Active Substance: FLUTICASONE FUROATE\SALMETEROL XINAFOATE
  11. PRAVASTATIN [Concomitant]
     Active Substance: PRAVASTATIN\PRAVASTATIN SODIUM
  12. AMLOR [Concomitant]
     Active Substance: AMLODIPINE BESYLATE

REACTIONS (3)
  - Extremity necrosis [Unknown]
  - Peripheral coldness [Unknown]
  - Allergic granulomatous angiitis [Unknown]

NARRATIVE: CASE EVENT DATE: 201302
